APPROVED DRUG PRODUCT: ATENOLOL
Active Ingredient: ATENOLOL
Strength: 25MG
Dosage Form/Route: TABLET;ORAL
Application: A074499 | Product #001
Applicant: SUN PHARMACEUTICAL INDUSTRIES INC
Approved: Jul 30, 1997 | RLD: No | RS: No | Type: DISCN